FAERS Safety Report 4624026-8 (Version None)
Quarter: 2005Q1

REPORT INFORMATION
  Report Type: 
  Country: None (occurrence: None)
  Receive Date: 20050331
  Receipt Date: 20050325
  Transmission Date: 20050727
  Serious: Yes (Other)
  Sender: FDA-Public Use
  Company Number: PHEH2005US03638

PATIENT
  Age: 53 Year
  Sex: Male

DRUGS (3)
  1. CLOZAPINE [Suspect]
     Dosage: 500 MG, QD
     Route: 048
     Dates: start: 20041022
  2. CHEMOTHERAPEUTICS,OTHER [Concomitant]
     Indication: LUNG NEOPLASM MALIGNANT
  3. CLOZARIL [Suspect]
     Dosage: UNK, QD
     Route: 048
     Dates: end: 20041021

REACTIONS (1)
  - LUNG NEOPLASM MALIGNANT [None]
